FAERS Safety Report 23139525 (Version 1)
Quarter: 2023Q4

REPORT INFORMATION
  Report Type: Spontaneous
  Country: US (occurrence: None)
  Receive Date: 20231102
  Receipt Date: 20231102
  Transmission Date: 20240110
  Serious: Yes (Hospitalization)
  Sender: FDA-Public Use
  Company Number: None

PATIENT
  Sex: Male

DRUGS (6)
  1. PIRFENIDONE [Suspect]
     Active Substance: PIRFENIDONE
     Indication: Idiopathic pulmonary fibrosis
     Route: 048
     Dates: start: 20230331
  2. ESBRIET CAP 267MG [Concomitant]
  3. HYDROCHLOROT CAP 12.5MG [Concomitant]
  4. IMODIUM A-D TAB 2MG [Concomitant]
  5. METOPROLOL TAB 75MG [Concomitant]
  6. VITAMIN B-12 TAB 250 MCG [Concomitant]

REACTIONS (1)
  - Embolism [None]
